FAERS Safety Report 19500948 (Version 1)
Quarter: 2021Q3

REPORT INFORMATION
  Report Type: Spontaneous
  Country: US (occurrence: US)
  Receive Date: 20210706
  Receipt Date: 20210706
  Transmission Date: 20211014
  Serious: Yes (Other)
  Sender: FDA-Public Use
  Company Number: None

PATIENT
  Age: 75 Year
  Sex: Female
  Weight: 74.25 kg

DRUGS (13)
  1. LOSARTAN. [Concomitant]
     Active Substance: LOSARTAN
  2. VITAMIN C 2000 MG [Concomitant]
  3. ASPIRIN. [Concomitant]
     Active Substance: ASPIRIN
  4. PILOCARPINE. [Concomitant]
     Active Substance: PILOCARPINE
  5. LEVOFLOXACIN 750 MG TABLET [Suspect]
     Active Substance: LEVOFLOXACIN
     Indication: DIVERTICULITIS
     Dosage: ?          QUANTITY:1 TABLET(S);?
     Route: 048
     Dates: start: 20210508, end: 20210514
  6. OMEGA 3 [Concomitant]
     Active Substance: OMEGA-3 FATTY ACIDS
  7. THERA TEAR [Concomitant]
  8. METRONIDAZOLE 500 TABLET [Suspect]
     Active Substance: METRONIDAZOLE
  9. ZINC. [Concomitant]
     Active Substance: ZINC
  10. COENZYME Q10 [Concomitant]
     Active Substance: DIETARY SUPPLEMENT\UBIDECARENONE
  11. PROBIOTICS [Concomitant]
     Active Substance: PROBIOTICS NOS
  12. BUSPAR [Concomitant]
     Active Substance: BUSPIRONE HYDROCHLORIDE
  13. GARLIC PILLS [Concomitant]

REACTIONS (20)
  - Headache [None]
  - Seizure [None]
  - Vulvovaginal pain [None]
  - Fatigue [None]
  - Asthenia [None]
  - Sneezing [None]
  - Dysgeusia [None]
  - Hypoaesthesia [None]
  - Hallucination [None]
  - Formication [None]
  - Diarrhoea [None]
  - Paraesthesia [None]
  - Pain [None]
  - Dystonia [None]
  - Nausea [None]
  - Rhinorrhoea [None]
  - Hypertension [None]
  - Dizziness [None]
  - Chills [None]
  - Spinal pain [None]

NARRATIVE: CASE EVENT DATE: 20210509
